FAERS Safety Report 5665449-8 (Version None)
Quarter: 2008Q1

REPORT INFORMATION
  Report Type: 
  Country: None (occurrence: None)
  Receive Date: 20080314
  Receipt Date: 20071203
  Transmission Date: 20080703
  Serious: No
  Sender: FDA-Public Use
  Company Number: US-ABBOTT-07P-163-0427634-00

PATIENT
  Sex: Male
  Weight: 93.524 kg

DRUGS (7)
  1. HUMIRA [Suspect]
     Indication: CROHN'S DISEASE
     Route: 058
     Dates: start: 20071119, end: 20071119
  2. HUMIRA [Suspect]
     Route: 058
     Dates: start: 20071203, end: 20071203
  3. HUMIRA [Suspect]
     Route: 058
  4. ADVICOR [Concomitant]
     Indication: DRUG USE FOR UNKNOWN INDICATION
  5. CLOPIDOGREL [Concomitant]
     Indication: DRUG USE FOR UNKNOWN INDICATION
  6. LORAZEPAM [Concomitant]
     Indication: DRUG USE FOR UNKNOWN INDICATION
  7. UNKNOWN MEDICATION [Concomitant]
     Indication: BLOOD PRESSURE

REACTIONS (2)
  - INJECTION SITE PRURITUS [None]
  - RASH [None]
